FAERS Safety Report 13245685 (Version 1)
Quarter: 2017Q1

REPORT INFORMATION
  Report Type: Other
  Country: DE (occurrence: DE)
  Receive Date: 20170217
  Receipt Date: 20170217
  Transmission Date: 20170428
  Serious: No
  Sender: FDA-Public Use
  Company Number: DE-NOVEL LABORATORIES, INC-E2B_00007195

PATIENT
  Age: 20 Year
  Sex: Female
  Weight: 65 kg

DRUGS (1)
  1. OXYCODONE [Suspect]
     Active Substance: OXYCODONE
     Indication: POSTOPERATIVE ANALGESIA
     Route: 048

REACTIONS (3)
  - Sleep disorder [Unknown]
  - Pruritus [Unknown]
  - Aggression [Unknown]

NARRATIVE: CASE EVENT DATE: 20160810
